FAERS Safety Report 6464130-5 (Version None)
Quarter: 2009Q4

REPORT INFORMATION
  Report Type: 
  Country: None (occurrence: None)
  Receive Date: 20091201
  Receipt Date: 20091119
  Transmission Date: 20100525
  Serious: Yes (Hospitalization, Other)
  Sender: FDA-Public Use
  Company Number: KR-ELI_LILLY_AND_COMPANY-KR200911005175

PATIENT
  Age: 56 Year
  Sex: Male

DRUGS (3)
  1. HUMALOG MIX 75/25 [Suspect]
     Indication: TYPE 2 DIABETES MELLITUS
     Dosage: 52 U, UNK
     Route: 058
     Dates: start: 20090801
  2. HUMALOG MIX 75/25 [Suspect]
     Dosage: 20 U, 2/D
     Route: 058
  3. CHEMOTHERAPEUTICS NOS [Concomitant]

REACTIONS (4)
  - ABDOMINAL PAIN [None]
  - NASOPHARYNGITIS [None]
  - NEOPLASM PROGRESSION [None]
  - PULMONARY OEDEMA [None]
